FAERS Safety Report 10785138 (Version 1)
Quarter: 2015Q1

REPORT INFORMATION
  Report Type: Spontaneous
  Country: US (occurrence: US)
  Receive Date: 20150211
  Receipt Date: 20150211
  Transmission Date: 20150721
  Serious: No
  Sender: FDA-Public Use
  Company Number: US-GLAXOSMITHKLINE-A1076822A

PATIENT

DRUGS (3)
  1. ANTIBIOTICS [Suspect]
     Active Substance: UNSPECIFIED INGREDIENT
     Indication: SINUSITIS
  2. LAMOTRIGINE TABLET [Suspect]
     Active Substance: LAMOTRIGINE
     Indication: DEPRESSION
     Dosage: 200 MG. UNKNOWN DOSING.
     Route: 065
     Dates: start: 20110815
  3. LAMICTAL [Suspect]
     Active Substance: LAMOTRIGINE
     Indication: DEPRESSION
     Dosage: 150 MG. UNKNOWN DOSING. START DATE: 30MAR2009.100 MG. UNKNOWN DOSING. START DATE: 31MAR2009.
     Route: 065
     Dates: start: 20090330

REACTIONS (2)
  - Sinusitis [Unknown]
  - Drug ineffective [Unknown]
